FAERS Safety Report 7463883-7 (Version None)
Quarter: 2011Q2

REPORT INFORMATION
  Report Type: 
  Country: None (occurrence: None)
  Receive Date: 20110506
  Receipt Date: 20110503
  Transmission Date: 20111010
  Serious: Yes (Other)
  Sender: FDA-Public Use
  Company Number: US-AMGEN-USASP2011015916

PATIENT
  Sex: Male

DRUGS (4)
  1. MITOMYCIN [Concomitant]
  2. CORTICOSTEROIDS [Concomitant]
  3. FLUOROURACIL [Concomitant]
  4. NPLATE [Suspect]
     Indication: IDIOPATHIC THROMBOCYTOPENIC PURPURA
     Dosage: 1.1 A?G/KG, UNK
     Dates: start: 20100324, end: 20110417

REACTIONS (2)
  - THROMBOCYTOPENIA [None]
  - ANAL CANCER [None]
